FAERS Safety Report 17006542 (Version 1)
Quarter: 2019Q4

REPORT INFORMATION
  Report Type: Spontaneous
  Country: US (occurrence: US)
  Receive Date: 20191107
  Receipt Date: 20191107
  Transmission Date: 20200122
  Serious: No
  Sender: FDA-Public Use
  Company Number: US-TEVA-2019-US-1132458

PATIENT
  Sex: Female

DRUGS (1)
  1. MONTELUKAST SODIUM TABLETS TEVA [Suspect]
     Active Substance: MONTELUKAST SODIUM
     Indication: ASTHMA
     Route: 065

REACTIONS (10)
  - Malaise [Unknown]
  - Headache [Unknown]
  - Fatigue [Unknown]
  - Bowel movement irregularity [Unknown]
  - Dry throat [Unknown]
  - Asthenia [Unknown]
  - Fear [Unknown]
  - Product substitution issue [Unknown]
  - Nervousness [Unknown]
  - Product dispensing error [Unknown]
